FAERS Safety Report 19556846 (Version 1)
Quarter: 2021Q3

REPORT INFORMATION
  Report Type: Report from Study
  Country: FR (occurrence: FR)
  Receive Date: 20210715
  Receipt Date: 20210715
  Transmission Date: 20211014
  Serious: Yes (Other)
  Sender: FDA-Public Use
  Company Number: FR-TAKEDA-FR201850834

PATIENT
  Age: 56 Year
  Sex: Female

DRUGS (16)
  1. TEDUGLUTIDE [Suspect]
     Active Substance: TEDUGLUTIDE
     Dosage: 2.400 MILLIGRAM( 0.0500MG/KG), QD
     Route: 065
     Dates: start: 20170529, end: 20180524
  2. VERSATIS [Concomitant]
     Active Substance: LIDOCAINE
     Indication: CARPAL TUNNEL SYNDROME
     Dosage: 999.00 UNK
     Route: 061
     Dates: start: 201804
  3. TEDUGLUTIDE [Suspect]
     Active Substance: TEDUGLUTIDE
     Indication: SHORT-BOWEL SYNDROME
     Dosage: UNK
     Route: 065
     Dates: start: 20170529
  4. TEDUGLUTIDE [Suspect]
     Active Substance: TEDUGLUTIDE
     Indication: SHORT-BOWEL SYNDROME
     Dosage: UNK
     Route: 065
     Dates: start: 20170529
  5. TEDUGLUTIDE [Suspect]
     Active Substance: TEDUGLUTIDE
     Dosage: 2.400 MILLIGRAM( 0.0500MG/KG), QD
     Route: 065
     Dates: start: 20180607, end: 20190425
  6. VITAMIN D3 [Concomitant]
     Active Substance: CHOLECALCIFEROL
     Indication: VITAMIN SUPPLEMENTATION
     Dosage: 200000.00 UNITS
     Route: 058
     Dates: start: 201806, end: 201806
  7. VITAMIN B12 [Concomitant]
     Active Substance: CYANOCOBALAMIN
     Indication: VITAMIN SUPPLEMENTATION
     Dosage: 1 MILLIGRAM,ONE DOSE
     Route: 058
     Dates: start: 201806, end: 201806
  8. TEDUGLUTIDE [Suspect]
     Active Substance: TEDUGLUTIDE
     Indication: SHORT-BOWEL SYNDROME
     Dosage: UNK
     Route: 065
     Dates: start: 20170529
  9. TEDUGLUTIDE [Suspect]
     Active Substance: TEDUGLUTIDE
     Dosage: 2.400 MILLIGRAM( 0.0500MG/KG), QD
     Route: 065
     Dates: start: 20170529, end: 20180524
  10. TEDUGLUTIDE [Suspect]
     Active Substance: TEDUGLUTIDE
     Dosage: 2.400 MILLIGRAM( 0.0500MG/KG), QD
     Route: 065
     Dates: start: 20170529, end: 20180524
  11. ACLASTA [Concomitant]
     Active Substance: ZOLEDRONIC ACID
     Indication: OSTEOPOROSIS
     Dosage: 5 MILLIGRAM, ONE DOSE
     Route: 042
     Dates: start: 20180528, end: 20180528
  12. TEDUGLUTIDE [Suspect]
     Active Substance: TEDUGLUTIDE
     Indication: SHORT-BOWEL SYNDROME
     Dosage: UNK
     Route: 065
     Dates: start: 20170529
  13. TEDUGLUTIDE [Suspect]
     Active Substance: TEDUGLUTIDE
     Dosage: 2.400 MILLIGRAM( 0.0500MG/KG), QD
     Route: 065
     Dates: start: 20170529, end: 20180524
  14. TEDUGLUTIDE [Suspect]
     Active Substance: TEDUGLUTIDE
     Dosage: 2.400 MILLIGRAM( 0.0500MG/KG), QD
     Route: 065
     Dates: start: 20180607, end: 20190425
  15. TEDUGLUTIDE [Suspect]
     Active Substance: TEDUGLUTIDE
     Dosage: 2.400 MILLIGRAM( 0.0500MG/KG), QD
     Route: 065
     Dates: start: 20180607, end: 20190425
  16. TEDUGLUTIDE [Suspect]
     Active Substance: TEDUGLUTIDE
     Dosage: 2.400 MILLIGRAM( 0.0500MG/KG), QD
     Route: 065
     Dates: start: 20180607, end: 20190425

REACTIONS (2)
  - Cataract [Not Recovered/Not Resolved]
  - Xanthelasma [Not Recovered/Not Resolved]

NARRATIVE: CASE EVENT DATE: 20180731
